FAERS Safety Report 6803482-0 (Version None)
Quarter: 2010Q2

REPORT INFORMATION
  Report Type: 
  Country: None (occurrence: None)
  Receive Date: 20100628
  Receipt Date: 20100618
  Transmission Date: 20101027
  Serious: Yes (Hospitalization)
  Sender: FDA-Public Use
  Company Number: GXKR2010US06766

PATIENT
  Age: 64 Year
  Sex: Female

DRUGS (15)
  1. VANCOMYCIN (NGX) [Suspect]
     Indication: CHEMICAL PERITONITIS
     Route: 065
  2. MYCOPHENOLATE MOFETIL [Suspect]
     Indication: IMMUNOSUPPRESSION
     Route: 065
  3. TACROLIMUS (NGX) [Suspect]
     Indication: IMMUNOSUPPRESSION
     Route: 065
  4. STEROIDS NOS [Suspect]
     Indication: IMMUNOSUPPRESSION
     Route: 065
  5. PIPERACILLIN W/TAZOBACTAM [Concomitant]
     Indication: ANTIBIOTIC PROPHYLAXIS
  6. CIPROFLOXACIN [Concomitant]
     Indication: ANTIBIOTIC THERAPY
  7. CIPROFLOXACIN [Concomitant]
     Indication: URINARY TRACT INFECTION
  8. FLUCONAZOLE [Concomitant]
     Indication: ANTIBIOTIC THERAPY
  9. FLUCONAZOLE [Concomitant]
     Indication: OESOPHAGEAL CANDIDIASIS
  10. URSODIOL [Concomitant]
     Indication: BILIARY CIRRHOSIS
  11. SULFAMETHOXAZOLE AND TRIMETHOPRIM [Concomitant]
     Indication: ANTIFUNGAL PROPHYLAXIS
     Route: 065
  12. HYDROXYZINE [Concomitant]
     Indication: BILIARY CIRRHOSIS
  13. HYDROXYCHLOROQUINE [Concomitant]
     Indication: SJOGREN'S SYNDROME
  14. GANCICLOVIR [Concomitant]
     Indication: CYTOMEGALOVIRUS INFECTION
  15. LINEZOLID [Concomitant]
     Indication: URINARY TRACT INFECTION

REACTIONS (1)
  - STREPTOCOCCAL SEPSIS [None]
